FAERS Safety Report 26105762 (Version 3)
Quarter: 2025Q4

REPORT INFORMATION
  Report Type: Report from Study
  Country: US (occurrence: US)
  Receive Date: 20251201
  Receipt Date: 20251218
  Transmission Date: 20260118
  Serious: Yes (Other)
  Sender: BIOCODEX
  Company Number: US-BIOCODEX2-2025001248

PATIENT
  Age: 17 Year
  Sex: Female
  Weight: 58.5 kg

DRUGS (22)
  1. DIACOMIT [Suspect]
     Active Substance: STIRIPENTOL
     Indication: Severe myoclonic epilepsy of infancy
     Dosage: DAYS 1-7: 500 MG ONCE DAILY.
     Dates: start: 20250714
  2. DIACOMIT [Suspect]
     Active Substance: STIRIPENTOL
     Dosage: DAYS 8-14: 500 MG TWICE DAILY.
     Dates: start: 20250714
  3. DIACOMIT [Suspect]
     Active Substance: STIRIPENTOL
     Dosage: DAYS 15-21: 500 MG IN THE MORNING AND 1000 MG AT NIGHT EACH DAY.
     Dates: start: 20250714
  4. DIACOMIT [Suspect]
     Active Substance: STIRIPENTOL
     Dosage: DAYS 22-28: 1000 MG TWICE DAILY.
     Dates: start: 20250714
  5. DIACOMIT [Suspect]
     Active Substance: STIRIPENTOL
     Dosage: DAYS 29 AND THEREAFTER: 1000 MG IN THE MORNING AND 1500 MG AT NIGHT EACH DAY.
     Dates: start: 20250714
  6. DIACOMIT [Suspect]
     Active Substance: STIRIPENTOL
     Dosage: 1000 MG AND 1500 MG IN TWO SEPARATE DOSES EACH DAY
     Dates: start: 20250801
  7. DIACOMIT [Suspect]
     Active Substance: STIRIPENTOL
  8. DIACOMIT [Suspect]
     Active Substance: STIRIPENTOL
  9. DIACOMIT [Suspect]
     Active Substance: STIRIPENTOL
  10. DIACOMIT [Suspect]
     Active Substance: STIRIPENTOL
  11. DIACOMIT [Suspect]
     Active Substance: STIRIPENTOL
  12. DIACOMIT [Suspect]
     Active Substance: STIRIPENTOL
  13. CLOBAZAM [Concomitant]
     Active Substance: CLOBAZAM
     Indication: Severe myoclonic epilepsy of infancy
     Dosage: 20MG, ORALLY
  14. CLOBAZAM [Concomitant]
     Active Substance: CLOBAZAM
     Route: 048
  15. EPIDIOLEX [Concomitant]
     Active Substance: CANNABIDIOL
     Indication: Product used for unknown indication
     Dosage: 7.5ML, ORALLY
  16. EPIDIOLEX [Concomitant]
     Active Substance: CANNABIDIOL
     Route: 048
  17. DEPAKOTE ER [Concomitant]
     Active Substance: DIVALPROEX SODIUM
     Indication: Product used for unknown indication
  18. DEPAKOTE ER [Concomitant]
     Active Substance: DIVALPROEX SODIUM
     Route: 048
  19. LEVOCARNITINE [Concomitant]
     Active Substance: LEVOCARNITINE
     Indication: Product used for unknown indication
  20. LEVOCARNITINE [Concomitant]
     Active Substance: LEVOCARNITINE
  21. KEPPRA [Concomitant]
     Active Substance: LEVETIRACETAM
     Indication: Product used for unknown indication
     Dosage: 1500 MG ORALLY
  22. KEPPRA [Concomitant]
     Active Substance: LEVETIRACETAM
     Route: 048

REACTIONS (10)
  - Inappropriate schedule of product administration [Unknown]
  - Off label use [Unknown]
  - Poor quality sleep [Recovered/Resolved]
  - Restlessness [Recovering/Resolving]
  - Aggression [Recovering/Resolving]
  - Insomnia [Recovered/Resolved]
  - Anger [Recovering/Resolving]
  - Multiple injuries [Recovered/Resolved]
  - Agitation [Unknown]
  - Insomnia [Unknown]

NARRATIVE: CASE EVENT DATE: 20250714
